FAERS Safety Report 6487946-8 (Version None)
Quarter: 2009Q4

REPORT INFORMATION
  Report Type: 
  Country: None (occurrence: None)
  Receive Date: 20091210
  Receipt Date: 20091130
  Transmission Date: 20100525
  Serious: Yes (Death)
  Sender: FDA-Public Use
  Company Number: US-ABBOTT-09P-163-0608768-00

PATIENT
  Sex: Female
  Weight: 60.836 kg

DRUGS (7)
  1. HUMIRA [Suspect]
     Indication: RHEUMATOID ARTHRITIS
     Dates: end: 20081209
  2. METHOTREXATE [Concomitant]
     Indication: RHEUMATOID ARTHRITIS
     Dates: start: 19990101
  3. PROCRIT [Concomitant]
     Indication: RED BLOOD CELL COUNT DECREASED
  4. PROCRIT [Concomitant]
     Route: 050
  5. IRON [Concomitant]
     Indication: RED BLOOD CELL COUNT DECREASED
  6. HUMULIN N [Concomitant]
     Indication: DIABETES MELLITUS
     Dosage: 12 UNITS IN MORNING AND 8 UNITS IN EVENING
  7. HUMULIN R [Concomitant]
     Indication: DIABETES MELLITUS
     Dosage: 8 UNITS IN MORNING AND 4 TO 6 UNITS IN EVENING

REACTIONS (2)
  - COUGH [None]
  - LUNG CARCINOMA CELL TYPE UNSPECIFIED STAGE IV [None]
